FAERS Safety Report 7242583-2 (Version None)
Quarter: 2010Q4

REPORT INFORMATION
  Report Type: 
  Country: None (occurrence: None)
  Receive Date: 20101130
  Receipt Date: 20100607
  Transmission Date: 20110411
  Serious: Yes (Hospitalization)
  Sender: FDA-Public Use
  Company Number: US201005001883

PATIENT
  Sex: Male

DRUGS (8)
  1. BYETTA [Suspect]
     Indication: TYPE 2 DIABETES MELLITUS
     Dosage: 10 UG, SUBCUTANEOUS, 10 UG, SUBCUTANEOUS
     Route: 058
     Dates: start: 20080301, end: 20080401
  2. BYETTA [Suspect]
     Indication: TYPE 2 DIABETES MELLITUS
     Dosage: 10 UG, SUBCUTANEOUS, 10 UG, SUBCUTANEOUS
     Route: 058
     Dates: start: 20080401, end: 20100503
  3. EXENATIDE PEN, DISPOSABLE DEVICE (EXENATIDE PAN) [Concomitant]
  4. EXENATIDE PEN, DISPOSABLE DEVICE (EXENATIDE PEN) [Concomitant]
  5. METFORMIN HCL [Concomitant]
  6. HYDROCHLOROTHIAZIDE [Concomitant]
  7. XALATAN [Concomitant]
  8. TIMOPTIC [Concomitant]

REACTIONS (1)
  - ANGIOEDEMA [None]
